FAERS Safety Report 13082457 (Version 4)
Quarter: 2017Q4

REPORT INFORMATION
  Report Type: Spontaneous
  Country: US (occurrence: US)
  Receive Date: 20170103
  Receipt Date: 20171207
  Transmission Date: 20180320
  Serious: Yes (Other)
  Sender: FDA-Public Use
  Company Number: US-PFIZER INC-2016371031

PATIENT
  Sex: Male
  Weight: 93.88 kg

DRUGS (3)
  1. SUTENT [Suspect]
     Active Substance: SUNITINIB MALATE
     Dosage: 50 MG, CYCLIC (ONCE A DAY, 2 WEEKS ON, 1 WEEK OFF)
     Route: 048
  2. METOPROLOL. [Concomitant]
     Active Substance: METOPROLOL
     Dosage: 37.5 MG , DAILY (37.5 MG, CUTTING THE DOSE IN HALF AND TAKING IT TWICE A DAY)
  3. SUTENT [Suspect]
     Active Substance: SUNITINIB MALATE
     Indication: RENAL CANCER METASTATIC
     Dosage: 37.5 MG, CYCLIC (ONCE A DAY, 2 WEEKS ON, 1 WEEK OFF))
     Route: 048

REACTIONS (6)
  - Neoplasm progression [Unknown]
  - Weight decreased [Unknown]
  - Abdominal hernia [Unknown]
  - Diarrhoea [Recovered/Resolved]
  - Abdominal pain [Unknown]
  - Blood pressure increased [Unknown]
